FAERS Safety Report 9700723 (Version 1)
Quarter: 2013Q4

REPORT INFORMATION
  Report Type: Spontaneous
  Country: US (occurrence: US)
  Receive Date: 20131121
  Receipt Date: 20131121
  Transmission Date: 20140711
  Serious: No
  Sender: FDA-Public Use
  Company Number: US-PFIZER INC-2013332609

PATIENT
  Age: 56 Year
  Sex: Female
  Weight: 49.89 kg

DRUGS (2)
  1. CHANTIX [Suspect]
     Indication: SMOKING CESSATION THERAPY
     Dosage: 0.5 MG, 1X/DAY
     Dates: start: 20131108, end: 201311
  2. CHANTIX [Suspect]
     Dosage: 1 MG, 2X/DAY
     Dates: start: 201311, end: 20131115

REACTIONS (3)
  - Nausea [Unknown]
  - Feeling abnormal [Unknown]
  - Drug hypersensitivity [Unknown]
